FAERS Safety Report 4426288-9 (Version None)
Quarter: 2004Q3

REPORT INFORMATION
  Report Type: 
  Country: None (occurrence: None)
  Receive Date: 20040811
  Receipt Date: 20040802
  Transmission Date: 20050211
  Serious: Yes (Hospitalization)
  Sender: FDA-Public Use
  Company Number: 2004-BP-06352RO

PATIENT
  Age: 86 Year
  Sex: Male

DRUGS (8)
  1. LEUCOVORIN CALCIUM [Suspect]
     Indication: COLORECTAL CANCER METASTATIC
     Dosage: 60 MG (NR), PO
     Route: 048
     Dates: start: 20040616, end: 20040707
  2. UFT [Suspect]
     Indication: COLORECTAL CANCER METASTATIC
     Dosage: 400 MG (500 MG), PO
     Route: 048
     Dates: start: 20040616, end: 20040707
  3. FENTANYL [Concomitant]
  4. MORPHINE SULFATE [Concomitant]
  5. GABAPENTIN [Concomitant]
  6. METOCLOPRAMIDE [Concomitant]
  7. MEGESTROL (MEGESTROL) [Concomitant]
  8. OMEPRAZOLE [Concomitant]

REACTIONS (6)
  - BLOOD UREA INCREASED [None]
  - BLOOD URIC ACID INCREASED [None]
  - DEHYDRATION [None]
  - FATIGUE [None]
  - NAUSEA [None]
  - WEIGHT DECREASED [None]
